FAERS Safety Report 5006840-2 (Version None)
Quarter: 2006Q1

REPORT INFORMATION
  Report Type: 
  Country: None (occurrence: None)
  Receive Date: 20060324
  Receipt Date: 20050512
  Transmission Date: 20060701
  Serious: Yes (Congenital Anomaly)
  Sender: FDA-Public Use
  Company Number: 05P-163-0300750-00

PATIENT

DRUGS (1)
  1. VALPROATE SODIUM [Suspect]

REACTIONS (1)
  - ATRIAL SEPTAL DEFECT [None]
